FAERS Safety Report 25252916 (Version 1)
Quarter: 2025Q2

REPORT INFORMATION
  Report Type: Spontaneous
  Country: PT (occurrence: PT)
  Receive Date: 20250430
  Receipt Date: 20250430
  Transmission Date: 20250717
  Serious: Yes (Other)
  Sender: CHEPLAPHARM
  Company Number: PT-CHEPLA-2025005341

PATIENT
  Age: 65 Year
  Sex: Male

DRUGS (3)
  1. GANCICLOVIR [Suspect]
     Active Substance: GANCICLOVIR
     Route: 042
     Dates: start: 20220313
  2. VALGANCICLOVIR [Suspect]
     Active Substance: VALGANCICLOVIR
     Dosage: DAILY DOSE: 900 MILLIGRAM
     Route: 048
  3. LEVETIRACETAM [Concomitant]
     Active Substance: LEVETIRACETAM

REACTIONS (6)
  - Glioblastoma [Unknown]
  - Respiratory failure [Unknown]
  - Herpes simplex pneumonia [Unknown]
  - Encephalitis autoimmune [Unknown]
  - Hydrocephalus [Unknown]
  - Brain oedema [Unknown]

NARRATIVE: CASE EVENT DATE: 20220315
